FAERS Safety Report 14344596 (Version 2)
Quarter: 2018Q1

REPORT INFORMATION
  Report Type: Spontaneous
  Country: US (occurrence: US)
  Receive Date: 20180102
  Receipt Date: 20180213
  Transmission Date: 20180509
  Serious: Yes (Other)
  Sender: FDA-Public Use
  Company Number: US-SUN PHARMACEUTICAL INDUSTRIES LTD-2017US-158556

PATIENT
  Age: 22 Year
  Sex: Female

DRUGS (1)
  1. IMODIUM [Suspect]
     Active Substance: LOPERAMIDE HYDROCHLORIDE
     Indication: DRUG WITHDRAWAL MAINTENANCE THERAPY
     Dosage: UNK UNK, DAILY
     Route: 048

REACTIONS (3)
  - Intentional overdose [Unknown]
  - Arrhythmia [Unknown]
  - Circulatory collapse [Unknown]
